FAERS Safety Report 7427305-4 (Version None)
Quarter: 2011Q2

REPORT INFORMATION
  Report Type: 
  Country: None (occurrence: None)
  Receive Date: 20110420
  Receipt Date: 20110415
  Transmission Date: 20111010
  Serious: No
  Sender: FDA-Public Use
  Company Number: US-PFIZER INC-2011084184

PATIENT
  Sex: Male

DRUGS (1)
  1. SUTENT [Suspect]

REACTIONS (1)
  - MYALGIA [None]
